FAERS Safety Report 21036828 (Version 7)
Quarter: 2022Q4

REPORT INFORMATION
  Report Type: Report from Study
  Country: GB (occurrence: GB)
  Receive Date: 20220702
  Receipt Date: 20221226
  Transmission Date: 20230113
  Serious: Yes (Death, Hospitalization, Other)
  Sender: FDA-Public Use
  Company Number: None

PATIENT
  Age: 73 Year
  Sex: Female
  Weight: 72 kg

DRUGS (28)
  1. ALLOPURINOL [Suspect]
     Active Substance: ALLOPURINOL
     Indication: Plasma cell myeloma
     Dosage: 3 MG
     Route: 048
     Dates: start: 20160223, end: 20160321
  2. DEXAMETHASONE [Suspect]
     Active Substance: DEXAMETHASONE
     Indication: Plasma cell myeloma
     Dosage: 40 MILLIGRAM, EVERY WEEK, 5.71 MG, SOLUBLE TABLET
     Route: 048
     Dates: start: 20160223
  3. POMALIDOMIDE [Suspect]
     Active Substance: POMALIDOMIDE
     Indication: Plasma cell myeloma
     Dosage: 3 MILLIGRAM, ALSO RECEIVED 4 MG
     Route: 048
     Dates: start: 20160223, end: 20160321
  4. LENALIDOMIDE [Suspect]
     Active Substance: LENALIDOMIDE
     Indication: Prophylaxis
     Dosage: 200 MG, QD, ALSO RECEIVED 1400 MG
     Route: 048
     Dates: start: 20160223
  5. OMEPRAZOLE [Concomitant]
     Active Substance: OMEPRAZOLE
     Indication: Product used for unknown indication
     Dosage: 20 MILLIGRAM, ONCE A DAY
     Route: 048
     Dates: start: 20160223
  6. DALTEPARIN [Concomitant]
     Active Substance: DALTEPARIN
     Indication: Anticoagulant therapy
     Dosage: 5000 INTERNATIONAL UNIT
     Dates: start: 20160223, end: 20160302
  7. ALLOPURINOL [Suspect]
     Active Substance: ALLOPURINOL
     Indication: Prophylaxis
     Dosage: 200 MG, ONCE A DAY, 3 MG
     Route: 048
     Dates: start: 20160223
  8. ALLOPURINOL [Suspect]
     Active Substance: ALLOPURINOL
     Indication: Plasma cell myeloma
     Dosage: 40 MILLIGRAM
     Route: 048
     Dates: start: 20160315
  9. DEXAMETHASONE [Suspect]
     Active Substance: DEXAMETHASONE
     Indication: Plasma cell myeloma
     Dosage: 40 MILLIGRAM, ALSO RECEIVED 5.71 MG
     Route: 048
     Dates: start: 20160315, end: 20160322
  10. POMALIDOMIDE [Suspect]
     Active Substance: POMALIDOMIDE
     Indication: Plasma cell myeloma
     Dosage: 84 MILLIGRAM, 28 DAYS (3 MILLIGRAM
     Route: 048
     Dates: start: 20160223, end: 20160228
  11. DEXAMETHASONE [Suspect]
     Active Substance: DEXAMETHASONE
     Indication: Plasma cell myeloma
     Dosage: 40 MG, WEEKLY
     Route: 048
     Dates: start: 20160223, end: 20160315
  12. POMALIDOMIDE [Suspect]
     Active Substance: POMALIDOMIDE
     Indication: Plasma cell myeloma
     Dosage: 84 MG (84 MILLIGRAM, 28 DAYS (3 MILLIGRAM)
     Route: 048
     Dates: start: 20160223, end: 20160315
  13. ALLOPURINOL [Suspect]
     Active Substance: ALLOPURINOL
     Indication: Prophylaxis
     Dosage: 3 MG, 40 MG, QD, ALSO RECEIVED 200 MG
     Route: 048
     Dates: start: 20160223, end: 20160228
  14. ALLOPURINOL [Suspect]
     Active Substance: ALLOPURINOL
     Indication: Plasma cell myeloma
     Dosage: 200 MILLIGRAM, ONCE A DAY
     Route: 048
     Dates: start: 20160223
  15. DEXAMETHASONE [Suspect]
     Active Substance: DEXAMETHASONE
     Indication: Plasma cell myeloma
     Dosage: 40 MILLIGRAM, EVERY WEEK, ALSO RECEIVED 5.71 MG
     Route: 048
     Dates: start: 20160223, end: 20160302
  16. POMALIDOMIDE [Suspect]
     Active Substance: POMALIDOMIDE
     Indication: Plasma cell myeloma
     Dosage: 84 MILLIGRAM, 28 DAYS (3 MILLIGRAM)
     Route: 048
     Dates: start: 20160223, end: 20160228
  17. ALLOPURINOL [Suspect]
     Active Substance: ALLOPURINOL
     Indication: Plasma cell myeloma
     Dosage: 200 MILLIGRAM, ONCE A DAY
     Route: 048
     Dates: start: 20160223
  18. DEXAMETHASONE [Suspect]
     Active Substance: DEXAMETHASONE
     Indication: Plasma cell myeloma
     Dosage: 40 MILLIGRAM, EVERY WEEK
     Route: 048
     Dates: start: 20160223, end: 20160315
  19. POMALIDOMIDE [Suspect]
     Active Substance: POMALIDOMIDE
     Indication: Plasma cell myeloma
     Dosage: 84 MILLIGRAM, 28 DAYS (3 MILLIGRAM)
     Route: 048
     Dates: start: 20160223, end: 20160321
  20. DEXAMETHASONE [Suspect]
     Active Substance: DEXAMETHASONE
     Indication: Product used for unknown indication
     Dosage: 5.71 MILLIGRAM
     Route: 048
     Dates: start: 20160315
  21. POMALIDOMIDE [Suspect]
     Active Substance: POMALIDOMIDE
     Indication: Product used for unknown indication
     Dosage: 63 MG
     Route: 048
     Dates: start: 20160223, end: 20160315
  22. POMALIDOMIDE [Suspect]
     Active Substance: POMALIDOMIDE
     Indication: Plasma cell myeloma
     Dosage: 84 MG
     Route: 048
     Dates: start: 20160223, end: 20160328
  23. LENALIDOMIDE [Suspect]
     Active Substance: LENALIDOMIDE
     Indication: Prophylaxis
     Dosage: 200 MILLIGRAM
     Route: 048
     Dates: start: 20160223, end: 20160228
  24. POMALIDOMIDE [Suspect]
     Active Substance: POMALIDOMIDE
     Indication: Prophylaxis
     Route: 048
     Dates: start: 20160223, end: 20160315
  25. POMALIDOMIDE [Suspect]
     Active Substance: POMALIDOMIDE
     Indication: Product used for unknown indication
     Route: 048
     Dates: start: 20160228
  26. POMALIDOMIDE [Suspect]
     Active Substance: POMALIDOMIDE
     Indication: Product used for unknown indication
     Dosage: RECEIVED TILL 2-MAR-2016 AND ALSO RECEIVED 15-MAR-2016 (8 DAYS), 5.7143?MILLIGRAM
     Route: 048
     Dates: start: 20160315
  27. ALLOPURINOL [Suspect]
     Active Substance: ALLOPURINOL
     Indication: Product used for unknown indication
     Dosage: 3 MG
     Route: 048
     Dates: start: 20160223, end: 20160228
  28. ALLOPURINOL [Suspect]
     Active Substance: ALLOPURINOL
     Indication: Prophylaxis
     Dosage: 3 MG
     Route: 048
     Dates: start: 20160223, end: 20160321

REACTIONS (10)
  - Acute kidney injury [Fatal]
  - Thrombocytopenia [Fatal]
  - Rash [Fatal]
  - Intentional product misuse [Fatal]
  - Condition aggravated [Fatal]
  - Pneumonia [Fatal]
  - Off label use [Unknown]
  - Plasma cell myeloma [Fatal]
  - Bone marrow failure [Fatal]
  - Neutropenia [Fatal]

NARRATIVE: CASE EVENT DATE: 20160301
